FAERS Safety Report 7929875-6 (Version None)
Quarter: 2011Q4

REPORT INFORMATION
  Report Type: 
  Country: None (occurrence: None)
  Receive Date: 20111116
  Receipt Date: 20111031
  Transmission Date: 20120403
  Serious: Yes (Hospitalization)
  Sender: FDA-Public Use
  Company Number: 2011AP002572

PATIENT
  Age: 11 Year
  Sex: Female

DRUGS (8)
  1. SOLU-MEDROL [Concomitant]
  2. ANTITHYMOCYTE [Concomitant]
  3. LACTULOSE [Concomitant]
  4. ACETYLCYSTEINE [Concomitant]
  5. IMMUNE GLOBULIN NOS [Concomitant]
  6. CYCLOSPORINE [Suspect]
     Indication: IMMUNOSUPPRESSION
     Dosage: BID
  7. CYCLOSPORINE [Suspect]
     Indication: APLASTIC ANAEMIA
     Dosage: BID
  8. VITAMIN K TAB [Concomitant]

REACTIONS (10)
  - CONSTIPATION [None]
  - JAUNDICE [None]
  - CHOLECYSTITIS [None]
  - PANCREATITIS ACUTE [None]
  - RENAL DISORDER [None]
  - CHOLELITHIASIS [None]
  - RENAL TUBULAR NECROSIS [None]
  - NEPHROPATHY TOXIC [None]
  - ANAEMIA [None]
  - AUTOIMMUNE HEPATITIS [None]
